FAERS Safety Report 5454833-3 (Version None)
Quarter: 2007Q3

REPORT INFORMATION
  Report Type: 
  Country: None (occurrence: None)
  Receive Date: 20070917
  Receipt Date: 20061023
  Transmission Date: 20080115
  Serious: Yes (Other)
  Sender: FDA-Public Use
  Company Number: US-ASTRAZENECA-2006UW17715

PATIENT
  Age: 6 Year
  Sex: Male

DRUGS (4)
  1. SEROQUEL [Suspect]
     Indication: AGGRESSION
     Route: 048
  2. SEROQUEL [Suspect]
     Indication: ABNORMAL BEHAVIOUR
     Route: 048
  3. SEROQUEL [Suspect]
     Route: 048
     Dates: start: 20060519, end: 20060603
  4. SEROQUEL [Suspect]
     Route: 048
     Dates: start: 20060519, end: 20060603

REACTIONS (1)
  - DYSTONIA [None]
